FAERS Safety Report 9569426 (Version 2)
Quarter: 2013Q3

REPORT INFORMATION
  Report Type: Spontaneous
  Country: US (occurrence: US)
  Receive Date: 20130930
  Receipt Date: 20130930
  Transmission Date: 20140515
  Serious: No
  Sender: FDA-Public Use
  Company Number: US-AMGEN-USASP2013036048

PATIENT
  Age: 55 Year
  Sex: Male
  Weight: 99.77 kg

DRUGS (5)
  1. ENBREL [Suspect]
     Indication: PSORIASIS
     Dosage: 50 MG, QWK
     Route: 058
  2. MELOXICAM [Concomitant]
     Dosage: 15 MG, UNK
     Route: 065
  3. LIPITOR [Concomitant]
     Dosage: 10 MG, UNK
     Route: 065
  4. TRICOR                             /00090101/ [Concomitant]
     Dosage: 48 MG, UNK
  5. LISINOPRIL [Concomitant]
     Dosage: 2.5 MG, UNK

REACTIONS (3)
  - Skin fissures [Unknown]
  - Skin haemorrhage [Unknown]
  - Drug ineffective [Unknown]
